APPROVED DRUG PRODUCT: RETIN-A-MICRO
Active Ingredient: TRETINOIN
Strength: 0.08%
Dosage Form/Route: GEL;TOPICAL
Application: N020475 | Product #003 | TE Code: AB
Applicant: BAUSCH HEALTH US LLC
Approved: Jan 28, 2014 | RLD: Yes | RS: Yes | Type: RX